FAERS Safety Report 5715457-3 (Version None)
Quarter: 2008Q2

REPORT INFORMATION
  Report Type: 
  Country: None (occurrence: None)
  Receive Date: 20080422
  Receipt Date: 20080409
  Transmission Date: 20081010
  Serious: Yes (Life-Threatening, Other)
  Sender: FDA-Public Use
  Company Number: 233425J08USA

PATIENT
  Age: 45 Year
  Sex: Female
  Weight: 74.3899 kg

DRUGS (1)
  1. REBIF [Suspect]
     Indication: MULTIPLE SCLEROSIS
     Dosage: 44 MCG, 3 IN 1 WEEKS, SUBCUTANEOUS
     Route: 058
     Dates: start: 20040609, end: 20070601

REACTIONS (2)
  - BASEDOW'S DISEASE [None]
  - HYPERTENSION [None]
